FAERS Safety Report 8167960-7 (Version None)
Quarter: 2012Q1

REPORT INFORMATION
  Report Type: 
  Country: None (occurrence: None)
  Receive Date: 20120227
  Receipt Date: 20120221
  Transmission Date: 20120608
  Serious: Yes (Death)
  Sender: FDA-Public Use
  Company Number: US-GLAXOSMITHKLINE-B0705583A

PATIENT
  Sex: Male
  Weight: 95 kg

DRUGS (3)
  1. INSULIN [Concomitant]
  2. AVANDIA [Suspect]
     Indication: DIABETES MELLITUS
     Dosage: 4MG TWICE PER DAY
     Route: 048
     Dates: start: 19990727, end: 20070101
  3. GLUCOPHAGE [Concomitant]

REACTIONS (4)
  - CARDIOVASCULAR DISORDER [None]
  - LACUNAR INFARCTION [None]
  - CARDIAC FAILURE CONGESTIVE [None]
  - DEATH [None]
